FAERS Safety Report 8269020-3 (Version None)
Quarter: 2012Q2

REPORT INFORMATION
  Report Type: 
  Country: None (occurrence: None)
  Receive Date: 20120409
  Receipt Date: 20120330
  Transmission Date: 20120825
  Serious: Yes (Hospitalization)
  Sender: FDA-Public Use
  Company Number: US-BAYER-2011-098970

PATIENT
  Age: 42 Year
  Sex: Female
  Weight: 63.492 kg

DRUGS (4)
  1. ZOFRAN [Concomitant]
     Indication: NAUSEA
     Dosage: UNK
     Dates: start: 20101005
  2. NITROFURANTOIN [Concomitant]
  3. YASMIN [Suspect]
     Indication: CONTRACEPTION
     Dosage: UNK
     Dates: start: 20050201, end: 20080701
  4. DROSPIRENONE AND ETHINYL ESTRADIOL [Suspect]
     Indication: CONTRACEPTION
     Dosage: UNK
     Dates: start: 20080701, end: 20091001

REACTIONS (3)
  - INJURY [None]
  - HEPATIC INFARCTION [None]
  - MESENTERIC VEIN THROMBOSIS [None]
